FAERS Safety Report 24743888 (Version 2)
Quarter: 2024Q4

REPORT INFORMATION
  Report Type: Spontaneous
  Country: US (occurrence: US)
  Receive Date: 20241217
  Receipt Date: 20241223
  Transmission Date: 20250115
  Serious: No
  Sender: PFIZER
  Company Number: US-PFIZER INC-202400323772

PATIENT
  Age: 26 Year
  Sex: Male

DRUGS (2)
  1. CIBINQO [Suspect]
     Active Substance: ABROCITINIB
     Indication: Dermatitis atopic
     Dosage: 100 MG, DAILY
     Route: 048
     Dates: start: 20241105
  2. CIBINQO [Suspect]
     Active Substance: ABROCITINIB
     Dosage: 200 MG, 1X/DAY
     Route: 048

REACTIONS (4)
  - Drug ineffective [Unknown]
  - Dermatitis atopic [Unknown]
  - Xeroderma [Unknown]
  - Product prescribing error [Unknown]
